FAERS Safety Report 12772294 (Version 1)
Quarter: 2016Q3

REPORT INFORMATION
  Report Type: Spontaneous
  Country: CO (occurrence: CO)
  Receive Date: 20160922
  Receipt Date: 20160922
  Transmission Date: 20161109
  Serious: Yes (Other)
  Sender: FDA-Public Use
  Company Number: CO-BRISTOL-MYERS SQUIBB COMPANY-BMS-2016-076963

PATIENT
  Age: 70 Year

DRUGS (1)
  1. GLUCOPHAGE XR [Suspect]
     Active Substance: METFORMIN HYDROCHLORIDE
     Indication: PRODUCT USED FOR UNKNOWN INDICATION
     Dosage: 850 MG, UNK
     Route: 065

REACTIONS (1)
  - Platelet disorder [Unknown]
